FAERS Safety Report 5235843-8 (Version None)
Quarter: 2007Q1

REPORT INFORMATION
  Report Type: 
  Country: None (occurrence: None)
  Receive Date: 20070212
  Receipt Date: 20070131
  Transmission Date: 20070707
  Serious: Yes (Other)
  Sender: FDA-Public Use
  Company Number: HQWYE634801JUN06

PATIENT
  Sex: Male
  Weight: 52 kg

DRUGS (6)
  1. MYLOTARG [Suspect]
     Indication: ACUTE MYELOID LEUKAEMIA RECURRENT
     Route: 041
     Dates: start: 20060216, end: 20060216
  2. MYLOTARG [Suspect]
     Route: 041
     Dates: start: 20060302, end: 20060302
  3. LENDORMIN [Concomitant]
     Indication: PROPHYLAXIS
     Dosage: 0.25 MG/DAY
     Route: 048
     Dates: start: 20060106, end: 20060317
  4. ARTIST [Concomitant]
     Indication: PROPHYLAXIS
     Dosage: 2.5 MG/DAY
     Route: 048
     Dates: start: 20060106, end: 20060317
  5. TAKEPRON [Concomitant]
     Indication: PROPHYLAXIS
     Dosage: 15 MG/DAY
     Route: 048
     Dates: start: 20060106, end: 20060317
  6. MUCOSTA [Concomitant]
     Indication: PROPHYLAXIS
     Dosage: 300 MG/DAY
     Route: 048
     Dates: start: 20060106, end: 20060317

REACTIONS (16)
  - ALANINE AMINOTRANSFERASE INCREASED [None]
  - ANAEMIA [None]
  - ASPARTATE AMINOTRANSFERASE INCREASED [None]
  - BLOOD ALKALINE PHOSPHATASE INCREASED [None]
  - BLOOD BILIRUBIN INCREASED [None]
  - DISEASE PROGRESSION [None]
  - DISSEMINATED INTRAVASCULAR COAGULATION [None]
  - DYSPNOEA [None]
  - FALL [None]
  - HAEMATOMA [None]
  - HEPATIC FUNCTION ABNORMAL [None]
  - INFECTION [None]
  - NEUTROPENIA [None]
  - PLATELET COUNT DECREASED [None]
  - PLEURISY [None]
  - PNEUMONIA [None]
